FAERS Safety Report 12936053 (Version 5)
Quarter: 2017Q2

REPORT INFORMATION
  Report Type: Spontaneous
  Country: US (occurrence: US)
  Receive Date: 20161114
  Receipt Date: 20170405
  Transmission Date: 20170830
  Serious: Yes (Hospitalization, Other)
  Sender: FDA-Public Use
  Company Number: US-INCYTE CORPORATION-2016IN007134

PATIENT
  Age: 88 Year
  Sex: Female
  Weight: 63 kg

DRUGS (18)
  1. JAKAFI [Suspect]
     Active Substance: RUXOLITINIB
     Dosage: NOT SPECIFIED
     Route: 048
     Dates: start: 20170118
  2. CARVEDILOL. [Concomitant]
     Active Substance: CARVEDILOL
     Indication: PRODUCT USED FOR UNKNOWN INDICATION
  3. CYCLOBENZAPRINE. [Concomitant]
     Active Substance: CYCLOBENZAPRINE
     Indication: PRODUCT USED FOR UNKNOWN INDICATION
  4. PANTOPRAZOLE [Concomitant]
     Active Substance: PANTOPRAZOLE
     Indication: PRODUCT USED FOR UNKNOWN INDICATION
  5. LISINOPRIL. [Concomitant]
     Active Substance: LISINOPRIL
     Indication: PRODUCT USED FOR UNKNOWN INDICATION
  6. METOPROLOL. [Concomitant]
     Active Substance: METOPROLOL
     Indication: PRODUCT USED FOR UNKNOWN INDICATION
  7. SULFAMETHOXAZOLE AND TRIMETHOPRIM [Concomitant]
     Active Substance: SULFAMETHOXAZOLE\TRIMETHOPRIM
     Indication: PRODUCT USED FOR UNKNOWN INDICATION
  8. JAKAFI [Suspect]
     Active Substance: RUXOLITINIB
     Dosage: 10 MG, BID, QOD
     Route: 048
     Dates: start: 20161011
  9. HCTZ [Concomitant]
     Active Substance: HYDROCHLOROTHIAZIDE
     Indication: PRODUCT USED FOR UNKNOWN INDICATION
  10. IBUPROFEN. [Concomitant]
     Active Substance: IBUPROFEN
     Indication: PRODUCT USED FOR UNKNOWN INDICATION
  11. XARELTO [Concomitant]
     Active Substance: RIVAROXABAN
     Indication: PRODUCT USED FOR UNKNOWN INDICATION
     Dosage: 15 MG, TABLET
     Route: 048
  12. ARANESP [Concomitant]
     Active Substance: DARBEPOETIN ALFA
     Indication: PRODUCT USED FOR UNKNOWN INDICATION
     Dosage: 100 MCG/0.5 SYRINGE
     Route: 058
  13. DIGOXIN. [Concomitant]
     Active Substance: DIGOXIN
     Indication: PRODUCT USED FOR UNKNOWN INDICATION
     Dosage: UNK
     Route: 065
  14. JAKAFI [Suspect]
     Active Substance: RUXOLITINIB
     Indication: MYELOFIBROSIS
     Dosage: 10 MG, BID M-F, QD SAT-SUN
     Route: 048
     Dates: start: 20161004, end: 201703
  15. JAKAFI [Suspect]
     Active Substance: RUXOLITINIB
     Dosage: 10 MG, BID
     Route: 048
     Dates: start: 20161005
  16. METOPROLOL TARTRATE. [Concomitant]
     Active Substance: METOPROLOL TARTRATE
     Indication: PRODUCT USED FOR UNKNOWN INDICATION
  17. AMOXICILLIN AND CLAVULANATE POTASSIUM [Concomitant]
     Active Substance: AMOXICILLIN\CLAVULANATE POTASSIUM
     Indication: PRODUCT USED FOR UNKNOWN INDICATION
  18. METHYLPREDNISOLONE. [Concomitant]
     Active Substance: METHYLPREDNISOLONE
     Indication: PRODUCT USED FOR UNKNOWN INDICATION

REACTIONS (42)
  - Atrial fibrillation [Unknown]
  - Pruritus generalised [Not Recovered/Not Resolved]
  - Pruritus [Recovered/Resolved]
  - Rhinitis [Unknown]
  - Asthenia [Unknown]
  - Haemoglobin decreased [Unknown]
  - Nasal congestion [Unknown]
  - Muscular weakness [Unknown]
  - Myopathy [Unknown]
  - White blood cell count decreased [Unknown]
  - Drug ineffective [Unknown]
  - Pyrexia [Unknown]
  - Faeces discoloured [Recovered/Resolved]
  - Appetite disorder [Unknown]
  - Oropharyngeal pain [Unknown]
  - Oral pain [Unknown]
  - Sinus headache [Unknown]
  - Joint instability [Unknown]
  - Purpura [Unknown]
  - Headache [Unknown]
  - Orthostatic hypotension [Unknown]
  - Hypergammaglobulinaemia benign monoclonal [Unknown]
  - Mycosis fungoides [Unknown]
  - Pancytopenia [Unknown]
  - Red blood cell count decreased [Unknown]
  - Chest pain [Unknown]
  - Viral upper respiratory tract infection [Unknown]
  - Gait disturbance [Unknown]
  - Fatigue [Unknown]
  - Reticulocytopenia [Unknown]
  - Sinusitis [Unknown]
  - Dyspnoea [Unknown]
  - Dysgeusia [Unknown]
  - Dyspnoea exertional [Recovered/Resolved]
  - Stomatitis [Unknown]
  - Limb discomfort [Unknown]
  - Increased tendency to bruise [Unknown]
  - Anaemia [Unknown]
  - Haematocrit decreased [Unknown]
  - Dyspnoea exertional [Unknown]
  - Diarrhoea [Unknown]
  - Dizziness [Unknown]

NARRATIVE: CASE EVENT DATE: 20161107
